FAERS Safety Report 6698354-9 (Version None)
Quarter: 2010Q2

REPORT INFORMATION
  Report Type: 
  Country: None (occurrence: None)
  Receive Date: 20100427
  Receipt Date: 20100422
  Transmission Date: 20101027
  Serious: Yes (Hospitalization)
  Sender: FDA-Public Use
  Company Number: FR-SANOFI-AVENTIS-2010SA023207

PATIENT
  Age: 1 Day
  Sex: Female
  Weight: 0.76 kg

DRUGS (4)
  1. LOVENOX [Suspect]
     Route: 064
     Dates: start: 20090801, end: 20100205
  2. CORTANCYL [Suspect]
     Route: 064
     Dates: start: 20090801, end: 20100205
  3. PLAQUENIL [Suspect]
     Route: 064
     Dates: start: 20090801, end: 20100205
  4. IMUREL [Suspect]
     Route: 064
     Dates: start: 20090801, end: 20100205

REACTIONS (4)
  - DRUG EXPOSURE DURING PREGNANCY [None]
  - FOETAL GROWTH RETARDATION [None]
  - NEUTROPENIA NEONATAL [None]
  - PREMATURE BABY [None]
